FAERS Safety Report 9846669 (Version 1)
Quarter: 2013Q4

REPORT INFORMATION
  Report Type: Spontaneous
  Country: US (occurrence: None)
  Receive Date: 20131223
  Receipt Date: 20131223
  Transmission Date: 20140711
  Serious: Yes (Death)
  Sender: FDA-Public Use
  Company Number: 2013SCPR005861

PATIENT
  Age: 59 Year
  Sex: Male

DRUGS (1)
  1. FENTANYL CITRATE [Suspect]
     Indication: PRODUCT USED FOR UNKNOWN INDICATION
     Dates: start: 20121102

REACTIONS (1)
  - Death [None]
